FAERS Safety Report 17147082 (Version 9)
Quarter: 2020Q2

REPORT INFORMATION
  Report Type: Spontaneous
  Country: US (occurrence: US)
  Receive Date: 20191212
  Receipt Date: 20200612
  Transmission Date: 20200713
  Serious: No
  Sender: FDA-Public Use
  Company Number: US-ACTELION-A-NJ2019-198956

PATIENT
  Age: 32 Year
  Sex: Male

DRUGS (7)
  1. UPTRAVI [Suspect]
     Active Substance: SELEXIPAG
     Dosage: 800 MCG, BID
     Route: 048
     Dates: start: 20191204
  2. OPSUMIT [Suspect]
     Active Substance: MACITENTAN
     Indication: PULMONARY ARTERIAL HYPERTENSION
     Dosage: 10 MG, QD
     Route: 048
     Dates: start: 20191108
  3. UPTRAVI [Suspect]
     Active Substance: SELEXIPAG
     Indication: PULMONARY ARTERIAL HYPERTENSION
     Dosage: 1000 MCG, BID
     Route: 048
     Dates: start: 20191205
  4. UPTRAVI [Suspect]
     Active Substance: SELEXIPAG
     Dosage: 400 MCG, BID
     Route: 048
     Dates: start: 20191011
  5. ADEMPAS [Suspect]
     Active Substance: RIOCIGUAT
     Indication: PRODUCT USED FOR UNKNOWN INDICATION
     Route: 065
  6. UPTRAVI [Suspect]
     Active Substance: SELEXIPAG
     Dosage: 1200 MCG, BID
     Route: 048
  7. UPTRAVI [Suspect]
     Active Substance: SELEXIPAG
     Dosage: 600 MCG, BID
     Route: 048

REACTIONS (35)
  - Cyanosis [Not Recovered/Not Resolved]
  - Headache [Not Recovered/Not Resolved]
  - Depression [Unknown]
  - Treatment noncompliance [Unknown]
  - Lethargy [Unknown]
  - Drug abuse [Unknown]
  - Wheezing [Not Recovered/Not Resolved]
  - Dyspnoea exertional [Unknown]
  - Malaise [Unknown]
  - Abdominal pain upper [Unknown]
  - Pain [Unknown]
  - Arthralgia [Unknown]
  - Product dose omission [Recovered/Resolved]
  - Unevaluable event [Unknown]
  - Cough [Recovering/Resolving]
  - Hypoaesthesia [Unknown]
  - Discomfort [Unknown]
  - Loss of consciousness [Unknown]
  - Pallor [Unknown]
  - Oedema [Unknown]
  - Flushing [Not Recovered/Not Resolved]
  - Pneumonia [Unknown]
  - Asthenia [Unknown]
  - Pain in extremity [Unknown]
  - Skin discolouration [Unknown]
  - Dyspepsia [Unknown]
  - Varicose vein [Unknown]
  - Haemoptysis [Unknown]
  - Musculoskeletal pain [Unknown]
  - Breath sounds abnormal [Recovering/Resolving]
  - Hypotension [Not Recovered/Not Resolved]
  - Dyspnoea [Not Recovered/Not Resolved]
  - Feeling abnormal [Unknown]
  - Productive cough [Not Recovered/Not Resolved]
  - Chest pain [Unknown]

NARRATIVE: CASE EVENT DATE: 20200410
